FAERS Safety Report 6312225-9 (Version None)
Quarter: 2009Q3

REPORT INFORMATION
  Report Type: 
  Country: None (occurrence: None)
  Receive Date: 20090817
  Receipt Date: 20090813
  Transmission Date: 20100115
  Serious: Yes (Other)
  Sender: FDA-Public Use
  Company Number: US-TEVA-204359USA

PATIENT

DRUGS (7)
  1. BECLOMETASONE DIPROPIONATE INHALATION, 0.04 MG AND 0.08 MG [Suspect]
     Indication: ASTHMA
     Dosage: 2 PUFFS TWICE DAILY
     Route: 055
     Dates: start: 20090706
  2. OXCARBAZEPINE [Interacting]
     Indication: BIPOLAR DISORDER
  3. DIPHENHYDRAMINE HYDROCHLORIDE [Concomitant]
     Dosage: 25 MG PRN
  4. SALBUTAMOL SULFATE [Concomitant]
     Dosage: AS NEEDED
  5. MONTELUKAST [Concomitant]
     Dates: start: 20090730
  6. EPINASTINE HYDROCHLORIDE [Concomitant]
     Dosage: AS NEEDED
  7. TWINJECT 0.3 [Concomitant]
     Dosage: AS NEEDED

REACTIONS (2)
  - DRUG INTERACTION [None]
  - MANIA [None]
